FAERS Safety Report 8732457 (Version 2)
Quarter: 2015Q2

REPORT INFORMATION
  Report Type: Report from Study
  Country: US (occurrence: US)
  Receive Date: 20120820
  Receipt Date: 20150625
  Transmission Date: 20150821
  Serious: Yes (Hospitalization, Other)
  Sender: FDA-Public Use
  Company Number: US-ROCHE-1100607

PATIENT
  Age: 52 Year
  Sex: Female

DRUGS (8)
  1. ACTIVASE [Suspect]
     Active Substance: ALTEPLASE
     Dosage: BY BURETTED TUBING
     Route: 040
  2. LIDOCAINE INFUSION [Concomitant]
  3. HEPARIN [Concomitant]
     Active Substance: HEPARIN SODIUM
     Dosage: 5000 UNITS
     Route: 040
  4. ACTIVASE [Suspect]
     Active Substance: ALTEPLASE
     Indication: MYOCARDIAL INFARCTION
     Route: 040
  5. DALMANE [Concomitant]
     Active Substance: FLURAZEPAM HYDROCHLORIDE
     Route: 065
  6. ACTIVASE [Suspect]
     Active Substance: ALTEPLASE
     Route: 040
  7. ACTIVASE [Suspect]
     Active Substance: ALTEPLASE
     Dosage: GIVEN VIA PUMP
     Route: 040
  8. NITROGLYCERIN INFUSION [Concomitant]

REACTIONS (2)
  - Chest pain [Recovered/Resolved]
  - Dyspnoea [Unknown]
